FAERS Safety Report 15352112 (Version 1)
Quarter: 2018Q3

REPORT INFORMATION
  Report Type: Spontaneous
  Country: SK (occurrence: SK)
  Receive Date: 20180905
  Receipt Date: 20180905
  Transmission Date: 20181010
  Serious: Yes (Other)
  Sender: FDA-Public Use
  Company Number: SK-TEVA-2018-SK-949128

PATIENT
  Age: 63 Year
  Sex: Female

DRUGS (1)
  1. CAPECITABINE. [Suspect]
     Active Substance: CAPECITABINE
     Indication: BREAST CANCER METASTATIC
     Route: 048
     Dates: start: 201403

REACTIONS (3)
  - Deep vein thrombosis [Unknown]
  - Pelvic venous thrombosis [Unknown]
  - Oedema peripheral [Unknown]

NARRATIVE: CASE EVENT DATE: 2014
